FAERS Safety Report 24719367 (Version 1)
Quarter: 2024Q4

REPORT INFORMATION
  Report Type: Spontaneous
  Country: US (occurrence: US)
  Receive Date: 20241210
  Receipt Date: 20241210
  Transmission Date: 20250115
  Serious: No
  Sender: AMGEN
  Company Number: US-AMGEN-USASP2024241173

PATIENT

DRUGS (1)
  1. TEPROTUMUMAB [Suspect]
     Active Substance: TEPROTUMUMAB
     Indication: Endocrine ophthalmopathy
     Dosage: ONE INFUSION
     Route: 040

REACTIONS (7)
  - Autophony [Unknown]
  - Eustachian tube dysfunction [Unknown]
  - Hypoacusis [Unknown]
  - Ear congestion [Unknown]
  - Hyperacusis [Unknown]
  - Ear discomfort [Unknown]
  - Tinnitus [Unknown]
